FAERS Safety Report 6533746-X (Version None)
Quarter: 2010Q1

REPORT INFORMATION
  Report Type: 
  Country: None (occurrence: None)
  Receive Date: 20100111
  Receipt Date: 20090311
  Transmission Date: 20100710
  Serious: No
  Sender: FDA-Public Use
  Company Number: US-ABBOTT-09P-163-0562279-00

PATIENT
  Sex: Female

DRUGS (1)
  1. VICODIN [Suspect]
     Indication: JOINT INJURY
     Dosage: UNKNOWN DOSAGE
     Route: 048
     Dates: start: 19890101, end: 19890101

REACTIONS (1)
  - ABNORMAL DREAMS [None]
